FAERS Safety Report 9388008 (Version 3)
Quarter: 2013Q4

REPORT INFORMATION
  Report Type: Report from Study
  Country: JP (occurrence: JP)
  Receive Date: 20130708
  Receipt Date: 20131127
  Transmission Date: 20140711
  Serious: Yes (Hospitalization, Other)
  Sender: FDA-Public Use
  Company Number: JP-AMGEN-JPNCT2013047467

PATIENT
  Age: 84 Year
  Sex: Male
  Weight: 57 kg

DRUGS (10)
  1. DARBEPOETIN ALFA [Suspect]
     Indication: NEPHROGENIC ANAEMIA
     Dosage: 30 MUG, Q4WK
     Route: 042
     Dates: start: 20110621
  2. ADALAT CR [Concomitant]
     Indication: NEPHROSCLEROSIS
     Dosage: UNK
     Route: 048
  3. ARGAMATE [Concomitant]
     Indication: NEPHROSCLEROSIS
     Dosage: UNK
     Route: 048
  4. URINORM [Concomitant]
     Indication: NEPHROSCLEROSIS
     Dosage: UNK
     Route: 048
  5. AMOBAN [Concomitant]
     Dosage: UNK
     Route: 048
  6. LANDSEN [Concomitant]
     Dosage: UNK
     Route: 048
  7. SODIUM BICARBONATE [Concomitant]
     Indication: NEPHROSCLEROSIS
     Dosage: UNK
     Route: 048
  8. DIART [Concomitant]
     Indication: NEPHROSCLEROSIS
     Dosage: UNK
     Route: 048
  9. PARIET [Concomitant]
     Dosage: UNK
     Route: 048
  10. LASIX [Concomitant]
     Indication: NEPHROSCLEROSIS
     Dosage: UNK
     Route: 048

REACTIONS (4)
  - Gastric cancer [Recovering/Resolving]
  - Oesophageal ulcer haemorrhage [Recovered/Resolved]
  - Influenza [Recovered/Resolved]
  - Pneumonia [Recovered/Resolved]
